FAERS Safety Report 7241694-5 (Version None)
Quarter: 2011Q1

REPORT INFORMATION
  Report Type: 
  Country: None (occurrence: None)
  Receive Date: 20110124
  Receipt Date: 20110114
  Transmission Date: 20110831
  Serious: Yes (Other)
  Sender: FDA-Public Use
  Company Number: PHHY2011US03370

PATIENT
  Sex: Male

DRUGS (5)
  1. GLYBURIDE [Concomitant]
     Dosage: UNK
  2. EXJADE [Suspect]
     Indication: RENAL DISORDER
  3. GLYBURIDE [Concomitant]
     Dosage: BID
  4. RED BLOOD CELLS [Concomitant]
  5. EXJADE [Suspect]
     Indication: HAEMOLYTIC ANAEMIA
     Dosage: 1500 MG, QD
     Route: 048

REACTIONS (3)
  - EYE MOVEMENT DISORDER [None]
  - HYPOGLYCAEMIA [None]
  - DIARRHOEA [None]
